FAERS Safety Report 10045351 (Version 1)
Quarter: 2014Q1

REPORT INFORMATION
  Report Type: Spontaneous
  Country: US (occurrence: US)
  Receive Date: 20140328
  Receipt Date: 20140328
  Transmission Date: 20141002
  Serious: No
  Sender: FDA-Public Use
  Company Number: US-JNJFOC-20140318325

PATIENT
  Age: 9 Decade
  Sex: Male

DRUGS (2)
  1. IMBRUVICA [Suspect]
     Indication: PRODUCT USED FOR UNKNOWN INDICATION
     Route: 048
  2. WARFARIN [Concomitant]

REACTIONS (2)
  - Conjunctival haemorrhage [Unknown]
  - Ecchymosis [Unknown]
